FAERS Safety Report 16590899 (Version 1)
Quarter: 2019Q3

REPORT INFORMATION
  Report Type: Spontaneous
  Country: US (occurrence: US)
  Receive Date: 20190717
  Receipt Date: 20190717
  Transmission Date: 20191004
  Serious: Yes (Life-Threatening, Disabling)
  Sender: FDA-Public Use
  Company Number: None

PATIENT
  Age: 90 Year
  Sex: Female
  Weight: 72.9 kg

DRUGS (17)
  1. METOPROLOL TARTRATE. [Concomitant]
     Active Substance: METOPROLOL TARTRATE
  2. CITALOPRAM [Concomitant]
     Active Substance: CITALOPRAM HYDROBROMIDE
  3. LORAZEPAM. [Concomitant]
     Active Substance: LORAZEPAM
  4. LASIX [Concomitant]
     Active Substance: FUROSEMIDE
  5. ATORVASTAIN [Concomitant]
     Active Substance: ATORVASTATIN
  6. BENEFIBER [Concomitant]
     Active Substance: STARCH, WHEAT
  7. RALOXIFENE HCL [Concomitant]
     Active Substance: RALOXIFENE
  8. NAMENDA [Concomitant]
     Active Substance: MEMANTINE HYDROCHLORIDE
  9. BABY ASA [Concomitant]
     Active Substance: ASPIRIN
  10. CALCIUM WITH VIT D [Concomitant]
  11. VIT D 2000 [Concomitant]
  12. METHIMAZOLE. [Concomitant]
     Active Substance: METHIMAZOLE
  13. PROBIOTICS [Concomitant]
     Active Substance: PROBIOTICS NOS
  14. KCL [Concomitant]
     Active Substance: POTASSIUM CHLORIDE
  15. METHIMAZOLE. [Suspect]
     Active Substance: METHIMAZOLE
     Indication: HYPERTHYROIDISM
     Dosage: ?          QUANTITY:1 TABLET(S);?
     Route: 048
  16. MACRODANTIN [Concomitant]
     Active Substance: NITROFURANTOIN
  17. AMLODIPINE BESYLATE. [Concomitant]
     Active Substance: AMLODIPINE BESYLATE

REACTIONS (7)
  - Aspartate aminotransferase increased [None]
  - Dementia [None]
  - Aortic aneurysm [None]
  - Chromaturia [None]
  - Jaundice [None]
  - Renal cyst [None]
  - Hypophagia [None]

NARRATIVE: CASE EVENT DATE: 20190701
